FAERS Safety Report 6169456-0 (Version None)
Quarter: 2009Q2

REPORT INFORMATION
  Report Type: 
  Country: None (occurrence: None)
  Receive Date: 20090428
  Receipt Date: 20090427
  Transmission Date: 20091009
  Serious: Yes (Hospitalization, Other)
  Sender: FDA-Public Use
  Company Number: PHHO2005IT18317

PATIENT
  Sex: Female
  Weight: 55 kg

DRUGS (5)
  1. CGS 20267 T30748+ [Suspect]
     Indication: BREAST CANCER
     Dosage: 2.5 MG, QD
     Route: 048
     Dates: end: 20051122
  2. TAMOXIFEN CITRATE [Suspect]
     Dosage: 20 MG, QD- 2 YEARS
     Dates: start: 20011119
  3. DRONAL [Concomitant]
     Indication: OSTEOPOROSIS
     Dates: start: 20050301
  4. DIDROGYL [Concomitant]
     Indication: OSTEOPOROSIS
     Dates: start: 20030101
  5. FOSIPRES [Concomitant]
     Indication: HYPERTENSION

REACTIONS (7)
  - ANGIOPATHY [None]
  - APHASIA [None]
  - CONFUSIONAL STATE [None]
  - LACUNAR INFARCTION [None]
  - MOVEMENT DISORDER [None]
  - SPEECH DISORDER [None]
  - TRANSIENT ISCHAEMIC ATTACK [None]
